FAERS Safety Report 8839523 (Version 1)
Quarter: 2012Q4

REPORT INFORMATION
  Report Type: Spontaneous
  Country: US (occurrence: None)
  Receive Date: 20121012
  Receipt Date: 20121012
  Transmission Date: 20130627
  Serious: Yes (Life-Threatening)
  Sender: FDA-Public Use
  Company Number: None

PATIENT
  Age: 46 Year
  Sex: Female
  Weight: 127.01 kg

DRUGS (1)
  1. ENALAPRIL MALEATE [Suspect]
     Indication: HYPERTENSION
     Dosage: 10mg daily po
     Route: 048
     Dates: start: 20090601, end: 20121010

REACTIONS (3)
  - Angioedema [None]
  - Ocular hyperaemia [None]
  - Eye irritation [None]
